FAERS Safety Report 21639094 (Version 1)
Quarter: 2022Q4

REPORT INFORMATION
  Report Type: Spontaneous
  Country: US (occurrence: US)
  Receive Date: 20221124
  Receipt Date: 20221124
  Transmission Date: 20230113
  Serious: No
  Sender: FDA-Public Use
  Company Number: US-SA-SAC20221123001386

PATIENT
  Sex: Female
  Weight: 74 kg

DRUGS (5)
  1. AUBAGIO [Suspect]
     Active Substance: TERIFLUNOMIDE
     Indication: Multiple sclerosis
     Dosage: 14 MG, QD
     Route: 048
  2. KESIMPTA [Concomitant]
     Active Substance: OFATUMUMAB
  3. TOVIAZ [Concomitant]
     Active Substance: FESOTERODINE FUMARATE
  4. LINZESS [Concomitant]
     Active Substance: LINACLOTIDE
  5. AMANTADINE [Concomitant]
     Active Substance: AMANTADINE

REACTIONS (1)
  - Tremor [Unknown]
